FAERS Safety Report 5258994-0 (Version None)
Quarter: 2007Q1

REPORT INFORMATION
  Report Type: 
  Country: None (occurrence: None)
  Receive Date: 20070305
  Receipt Date: 20070216
  Transmission Date: 20070707
  Serious: Yes (Hospitalization)
  Sender: FDA-Public Use
  Company Number: 2007RR-05940

PATIENT
  Age: 17 Year
  Sex: Male

DRUGS (2)
  1. IBUPROFEN [Suspect]
     Indication: INFLUENZA
     Dosage: 1200 MG, QD, UNK
  2. PARACETAMOL (ACETAMINOPHEN/PARACETAMOL) UNKNOWN [Concomitant]

REACTIONS (1)
  - INFECTION MASKED [None]
